FAERS Safety Report 6546379-6 (Version None)
Quarter: 2010Q1

REPORT INFORMATION
  Report Type: 
  Country: None (occurrence: None)
  Receive Date: 20100122
  Receipt Date: 20091228
  Transmission Date: 20100710
  Serious: Yes (Hospitalization)
  Sender: FDA-Public Use
  Company Number: DE-ASTRAZENECA-2009SE33758

PATIENT
  Age: 75 Year
  Sex: Male
  Weight: 71 kg

DRUGS (13)
  1. OMEPRAZOL [Interacting]
     Indication: HELICOBACTER GASTRITIS
     Route: 048
     Dates: start: 20060901
  2. CLINDAMYCIN [Suspect]
     Indication: GOUTY TOPHUS
     Route: 048
     Dates: start: 20090731, end: 20090802
  3. FALITHROM [Concomitant]
     Indication: TACHYARRHYTHMIA
     Route: 048
     Dates: start: 20061001, end: 20090827
  4. ACETYLSALICYLIC ACID [Concomitant]
     Indication: CORONARY ARTERY DISEASE
     Route: 048
     Dates: start: 20090201
  5. DIGITOXIN INJ [Concomitant]
     Indication: ATRIAL FIBRILLATION
     Route: 048
     Dates: start: 20061001
  6. BISOPROLOL [Concomitant]
     Indication: HYPERTENSION
     Route: 048
     Dates: start: 20090201
  7. DIOVAN [Concomitant]
     Indication: HYPERTENSION
     Route: 048
     Dates: start: 20060901
  8. TORSEMIDE [Concomitant]
     Indication: RENAL FAILURE CHRONIC
     Route: 048
     Dates: start: 20090201, end: 20090827
  9. ALLOPURINOL [Concomitant]
     Indication: GOUTY ARTHRITIS
     Route: 048
     Dates: start: 20090701
  10. SIMVASTATIN [Concomitant]
     Route: 048
     Dates: start: 20090201
  11. TREVILOR [Concomitant]
     Indication: DEPRESSION
     Route: 048
     Dates: start: 20060901
  12. TREVILOR [Concomitant]
     Route: 048
     Dates: start: 20060901
  13. COLCHYSAT [Concomitant]
     Indication: GOUTY ARTHRITIS
     Route: 048
     Dates: start: 20090731, end: 20090802

REACTIONS (2)
  - CLOSTRIDIUM DIFFICILE COLITIS [None]
  - DRUG INTERACTION [None]
